FAERS Safety Report 9631092 (Version 1)
Quarter: 2013Q4

REPORT INFORMATION
  Report Type: Spontaneous
  Country: US (occurrence: None)
  Receive Date: 20131016
  Receipt Date: 20131016
  Transmission Date: 20140711
  Serious: Yes (Other)
  Sender: FDA-Public Use
  Company Number: None

PATIENT
  Age: 15 Year
  Sex: Female

DRUGS (1)
  1. TARCEVA 150 MG GENENTECH [Suspect]
     Route: 048
     Dates: start: 20130725, end: 20130925

REACTIONS (1)
  - Drug ineffective [None]
